FAERS Safety Report 6078341-4 (Version None)
Quarter: 2009Q1

REPORT INFORMATION
  Report Type: 
  Country: None (occurrence: None)
  Receive Date: 20090213
  Receipt Date: 20090204
  Transmission Date: 20090719
  Serious: Yes (Other)
  Sender: FDA-Public Use
  Company Number: US-WYE-H07335308

PATIENT
  Sex: Female

DRUGS (7)
  1. PREMPRO [Suspect]
  2. PROVERA [Suspect]
  3. PROMETRIUM [Suspect]
  4. ESTRATAB [Suspect]
  5. MENEST [Suspect]
  6. ESTRADIOL [Suspect]
  7. ESTRATEST [Suspect]

REACTIONS (1)
  - BREAST CANCER METASTATIC [None]
